FAERS Safety Report 7307744-2 (Version None)
Quarter: 2011Q1

REPORT INFORMATION
  Report Type: 
  Country: None (occurrence: None)
  Receive Date: 20110223
  Receipt Date: 20110210
  Transmission Date: 20110831
  Serious: Yes (Hospitalization, Other)
  Sender: FDA-Public Use
  Company Number: SE-ELI_LILLY_AND_COMPANY-SE201102002815

PATIENT
  Age: 88 Year
  Sex: Female

DRUGS (6)
  1. CYMBALTA [Suspect]
     Dosage: 60 MG, DAILY (1/D)
     Route: 048
     Dates: start: 20101006, end: 20101014
  2. ENALAPRIL MALEATE [Concomitant]
  3. ESIDRIX [Concomitant]
     Dates: end: 20101014
  4. KALCIPOS [Concomitant]
  5. ALVEDON [Concomitant]
  6. TROMBYL [Concomitant]

REACTIONS (4)
  - HYPONATRAEMIA [None]
  - BLOOD POTASSIUM DECREASED [None]
  - FALL [None]
  - OFF LABEL USE [None]
